FAERS Safety Report 4892473-5 (Version None)
Quarter: 2006Q1

REPORT INFORMATION
  Report Type: 
  Country: None (occurrence: None)
  Receive Date: 20060126
  Receipt Date: 20050907
  Transmission Date: 20060701
  Serious: No
  Sender: FDA-Public Use
  Company Number: US-BRISTOL-MYERS SQUIBB COMPANY-13102900

PATIENT
  Age: 2 Year
  Sex: Male
  Weight: 14 kg

DRUGS (4)
  1. CEFZIL [Suspect]
     Indication: PNEUMONIA
     Dates: start: 20050906
  2. TYLENOL CHILDRENS ELIXIR [Concomitant]
  3. SINGULAIR [Concomitant]
     Route: 048
  4. NASONEX [Concomitant]

REACTIONS (1)
  - PAROSMIA [None]
